FAERS Safety Report 11195744 (Version 1)
Quarter: 2015Q2

REPORT INFORMATION
  Report Type: Spontaneous
  Country: US (occurrence: US)
  Receive Date: 20150617
  Receipt Date: 20150617
  Transmission Date: 20150821
  Serious: Yes (Other)
  Sender: FDA-Public Use
  Company Number: US-BIOGENIDEC-2015BI080853

PATIENT
  Age: 61 Year
  Sex: Female

DRUGS (10)
  1. ALENDRONATE SODIUM. [Concomitant]
     Active Substance: ALENDRONATE SODIUM
     Route: 048
  2. GILENYA (FINGOLIMOD HYDROCHLORIDE) 0.5MG [Concomitant]
     Route: 048
  3. ESTRADIOL. [Concomitant]
     Active Substance: ESTRADIOL
  4. NUVIGIL [Concomitant]
     Active Substance: ARMODAFINIL
     Route: 048
  5. RITUXIMAB [Concomitant]
     Active Substance: RITUXIMAB
     Route: 042
  6. TRAMADOL HYDROCHLORIDE. [Concomitant]
     Active Substance: TRAMADOL HYDROCHLORIDE
     Route: 048
  7. BACLOFEN. [Concomitant]
     Active Substance: BACLOFEN
     Route: 048
  8. VITAMIN B12 [Concomitant]
     Active Substance: CYANOCOBALAMIN
  9. TECFIDERA [Suspect]
     Active Substance: DIMETHYL FUMARATE
     Indication: PRODUCT USED FOR UNKNOWN INDICATION
     Route: 048
  10. AMPYRA [Concomitant]
     Active Substance: DALFAMPRIDINE
     Indication: MULTIPLE SCLEROSIS
     Route: 048
     Dates: start: 201005

REACTIONS (5)
  - CD8 lymphocytes decreased [Unknown]
  - Neutrophil count increased [Unknown]
  - CD4 lymphocytes decreased [Unknown]
  - Lymphocyte count decreased [Unknown]
  - T-lymphocyte count decreased [Unknown]

NARRATIVE: CASE EVENT DATE: 20141118
